FAERS Safety Report 6719943-9 (Version None)
Quarter: 2010Q2

REPORT INFORMATION
  Report Type: 
  Country: None (occurrence: None)
  Receive Date: 20100511
  Receipt Date: 20100511
  Transmission Date: 20101027
  Serious: No
  Sender: FDA-Public Use
  Company Number: None

PATIENT
  Age: 3 Year
  Sex: Female

DRUGS (4)
  1. CHILDREN'S ZYRTEC ALLERGY [Suspect]
  2. TYLENOL (CAPLET) [Suspect]
  3. BENADRYL [Suspect]
  4. MOTRIN [Suspect]

REACTIONS (5)
  - ASTHMA [None]
  - HYPERSENSITIVITY [None]
  - RASH [None]
  - UNEVALUABLE EVENT [None]
  - VOMITING [None]
